FAERS Safety Report 23258739 (Version 1)
Quarter: 2023Q4

REPORT INFORMATION
  Report Type: Spontaneous
  Country: US (occurrence: None)
  Receive Date: 20231202
  Receipt Date: 20231202
  Transmission Date: 20240110
  Serious: Yes (Death)
  Sender: FDA-Public Use
  Company Number: None

PATIENT
  Age: 68 Year
  Sex: Female
  Weight: 56.25 kg

DRUGS (2)
  1. DULOXETINE [Suspect]
     Active Substance: DULOXETINE
     Indication: Depression
     Dosage: OTHER QUANTITY : 1 CAPSULE(S);?
     Route: 048
  2. LEVOTHYROXINE [Concomitant]
     Active Substance: LEVOTHYROXINE

REACTIONS (2)
  - Oral discharge [None]
  - Toxicity to various agents [None]

NARRATIVE: CASE EVENT DATE: 20191019
